FAERS Safety Report 18248435 (Version 1)
Quarter: 2020Q3

REPORT INFORMATION
  Report Type: Report from Study
  Country: US (occurrence: US)
  Receive Date: 20200909
  Receipt Date: 20200909
  Transmission Date: 20201103
  Serious: Yes (Death)
  Sender: FDA-Public Use
  Company Number: US-ASTRAZENECA-2020SF14074

PATIENT
  Sex: Female

DRUGS (13)
  1. VITAMIN D [Concomitant]
     Active Substance: VITAMIN D NOS
  2. MIRTAZAPINE. [Concomitant]
     Active Substance: MIRTAZAPINE
  3. TYLENOL [Concomitant]
     Active Substance: ACETAMINOPHEN
  4. ATENOLOL. [Concomitant]
     Active Substance: ATENOLOL
  5. FOLIC ACID. [Concomitant]
     Active Substance: FOLIC ACID
  6. AMLODIPINE [Concomitant]
     Active Substance: AMLODIPINE BESYLATE
  7. MELATONIN [Concomitant]
     Active Substance: MELATONIN
  8. MULTIVITAMIN [Concomitant]
     Active Substance: VITAMINS
  9. ATORVASTATIN [Concomitant]
     Active Substance: ATORVASTATIN
  10. FOSAMAX [Concomitant]
     Active Substance: ALENDRONATE SODIUM
  11. CALQUENCE [Suspect]
     Active Substance: ACALABRUTINIB
     Indication: CHRONIC LYMPHOCYTIC LEUKAEMIA
     Route: 048
     Dates: start: 20200729
  12. FOSINOPRIL [Concomitant]
     Active Substance: FOSINOPRIL
  13. KLOR?CON M10 [Concomitant]
     Active Substance: POTASSIUM CHLORIDE

REACTIONS (1)
  - Death [Fatal]
